FAERS Safety Report 17362118 (Version 1)
Quarter: 2020Q1

REPORT INFORMATION
  Report Type: Spontaneous
  Country: IT (occurrence: IT)
  Receive Date: 20200203
  Receipt Date: 20200203
  Transmission Date: 20200409
  Serious: Yes (Other)
  Sender: FDA-Public Use
  Company Number: IT-MYLANLABS-2019M1132357

PATIENT
  Age: 40 Year
  Sex: Female

DRUGS (4)
  1. PACLITAXEL. [Suspect]
     Active Substance: PACLITAXEL
     Dosage: 135 MILLIGRAM, CYCLE
     Route: 042
     Dates: start: 20190911
  2. CARBOPLATIN. [Suspect]
     Active Substance: CARBOPLATIN
     Dosage: 235 MILLIGRAM, CYCLE
     Route: 042
     Dates: start: 20190911
  3. PACLITAXEL. [Suspect]
     Active Substance: PACLITAXEL
     Indication: BREAST CANCER
     Dosage: 135 MILLIGRAM, CYCLE
     Route: 042
     Dates: start: 20190904
  4. CARBOPLATIN. [Suspect]
     Active Substance: CARBOPLATIN
     Indication: BREAST CANCER
     Dosage: 235 MILLIGRAM, CYCLE
     Route: 042
     Dates: start: 20190904, end: 20191119

REACTIONS (5)
  - Asthenia [Unknown]
  - Respiratory fatigue [Unknown]
  - Leukopenia [Unknown]
  - Anaemia [Unknown]
  - Flushing [Unknown]

NARRATIVE: CASE EVENT DATE: 20190917
